FAERS Safety Report 17241475 (Version 1)
Quarter: 2020Q1

REPORT INFORMATION
  Report Type: Report from Study
  Country: None (occurrence: US)
  Receive Date: 20200107
  Receipt Date: 20200107
  Transmission Date: 20200409
  Serious: Yes (Hospitalization)
  Sender: FDA-Public Use
  Company Number: US-ABBVIE-20K-163-3221208-00

PATIENT
  Sex: Female
  Weight: 48.58 kg

DRUGS (1)
  1. CREON [Suspect]
     Active Substance: PANCRELIPASE AMYLASE\PANCRELIPASE LIPASE\PANCRELIPASE PROTEASE
     Indication: PANCREATIC DISORDER
     Dosage: TWO EACH MEALS
     Route: 048

REACTIONS (3)
  - Fall [Recovering/Resolving]
  - Rib fracture [Recovering/Resolving]
  - Upper limb fracture [Recovering/Resolving]
